FAERS Safety Report 9355894 (Version 1)
Quarter: 2013Q2

REPORT INFORMATION
  Report Type: Report from Study
  Country: BR (occurrence: BR)
  Receive Date: 20130619
  Receipt Date: 20130619
  Transmission Date: 20140414
  Serious: Yes (Other)
  Sender: FDA-Public Use
  Company Number: BR-ABBOTT-11P-020-0844866-00

PATIENT
  Age: 29 Year
  Sex: Female
  Weight: 70 kg

DRUGS (19)
  1. HUMIRA 40 MG/ 0.8 ML PRE-FILLED SYRINGE [Suspect]
     Indication: RHEUMATOID ARTHRITIS
     Route: 058
     Dates: start: 20110614, end: 201305
  2. METHOTREXATE [Concomitant]
     Indication: RHEUMATOID ARTHRITIS
     Route: 048
     Dates: start: 2008
  3. DEFLAZACORT [Concomitant]
     Indication: RHEUMATOID ARTHRITIS
     Route: 048
     Dates: start: 20110110
  4. MELOXICAM [Concomitant]
     Indication: RHEUMATOID ARTHRITIS
     Route: 048
     Dates: end: 20110801
  5. CARISOPRODOL [Concomitant]
     Indication: RHEUMATOID ARTHRITIS
     Route: 048
     Dates: end: 20110801
  6. LOSARTAN [Concomitant]
     Indication: HYPERTENSION
     Route: 048
  7. LOSARTAN [Concomitant]
     Indication: BLOOD PRESSURE ABNORMAL
     Route: 048
  8. LOSARTAN [Concomitant]
     Route: 048
     Dates: start: 2003
  9. CHLORTHALIDONE [Concomitant]
     Indication: DIURETIC THERAPY
     Route: 048
  10. CHLORTHALIDONE [Concomitant]
     Indication: BLOOD PRESSURE ABNORMAL
     Route: 048
     Dates: start: 2003
  11. CALCIUM CARBONATE [Concomitant]
     Indication: SUPPLEMENTATION THERAPY
     Route: 048
     Dates: start: 20110110
  12. CELESTAMINE [Concomitant]
     Indication: DERMATITIS CONTACT
     Route: 048
  13. FOLIC ACID [Concomitant]
     Indication: POLYMEDICATION
     Route: 048
     Dates: start: 2008
  14. RIFAMPICIN [Concomitant]
     Indication: ANTIBIOTIC PROPHYLAXIS
     Route: 048
  15. SODIUM DIPYRONE [Concomitant]
     Indication: PAIN
     Dosage: 30 DROPS DAILY
     Route: 048
  16. OMEPRAZOLE [Concomitant]
     Indication: PROPHYLAXIS AGAINST GASTROINTESTINAL ULCER
     Route: 048
     Dates: start: 2004
  17. OMEPRAZOLE [Concomitant]
     Indication: GASTRIC DISORDER
  18. CALCIUM [Concomitant]
     Indication: PAIN
     Route: 048
     Dates: start: 2008
  19. PYCNOGENOL [Concomitant]
     Indication: PRODUCT USED FOR UNKNOWN INDICATION
     Route: 048
     Dates: start: 2008

REACTIONS (8)
  - Joint swelling [Not Recovered/Not Resolved]
  - Arthralgia [Not Recovered/Not Resolved]
  - Erythema [Not Recovered/Not Resolved]
  - Chondropathy [Not Recovered/Not Resolved]
  - Injection site pain [Recovered/Resolved]
  - Arthralgia [Not Recovered/Not Resolved]
  - Pain [Unknown]
  - Limb injury [Unknown]
